FAERS Safety Report 9686327 (Version 1)
Quarter: 2013Q4

REPORT INFORMATION
  Report Type: Spontaneous
  Country: US (occurrence: US)
  Receive Date: 20131113
  Receipt Date: 20131113
  Transmission Date: 20140711
  Serious: Yes (Hospitalization)
  Sender: FDA-Public Use
  Company Number: US-TMC-CABO-13003621

PATIENT
  Sex: Male

DRUGS (2)
  1. COMETRIQ [Suspect]
     Indication: THYROID CANCER
     Dosage: 100 MG, EVERY OTHER DAY
     Route: 048
     Dates: start: 20130223, end: 201310
  2. COMETRIQ [Suspect]
     Dosage: 120 MG, EVERY OTHER DAY
     Route: 048
     Dates: start: 20130224, end: 201310

REACTIONS (2)
  - Rectal abscess [Unknown]
  - Sepsis [Unknown]
